FAERS Safety Report 9106957 (Version 1)
Quarter: 2013Q1

REPORT INFORMATION
  Report Type: Spontaneous
  Country: GB (occurrence: GB)
  Receive Date: 20130221
  Receipt Date: 20130221
  Transmission Date: 20140127
  Serious: Yes (Hospitalization, Other)
  Sender: FDA-Public Use
  Company Number: GB-ASTRAZENECA-2013SE09762

PATIENT
  Age: 29 Year
  Sex: Female
  Weight: 57 kg

DRUGS (11)
  1. PROPOFOL [Suspect]
     Indication: ANAESTHESIA
     Route: 042
     Dates: start: 2004
  2. PROPOFOL [Suspect]
     Indication: ANAESTHESIA
     Route: 042
     Dates: start: 2009
  3. PROPOFOL [Suspect]
     Indication: ANAESTHESIA
     Route: 042
     Dates: start: 2010
  4. PROPOFOL [Suspect]
     Indication: ANAESTHESIA
     Route: 042
     Dates: start: 20130108, end: 20130108
  5. CYCLIZINE [Suspect]
     Indication: ANAESTHESIA
     Dates: start: 2010
  6. ATRACURIUM [Concomitant]
  7. BUPIVACAINE [Concomitant]
  8. DYNASTAT [Concomitant]
  9. ONDANSETRON [Concomitant]
     Dates: start: 2009
  10. PARACETAMOL [Concomitant]
  11. TRANEXAMIC ACID [Concomitant]

REACTIONS (2)
  - Dystonia [Recovered/Resolved]
  - Epilepsy [Recovered/Resolved]
